FAERS Safety Report 19853806 (Version 2)
Quarter: 2021Q3

REPORT INFORMATION
  Report Type: Spontaneous
  Country: CH (occurrence: CH)
  Receive Date: 20210920
  Receipt Date: 20210924
  Transmission Date: 20211014
  Serious: Yes (Other)
  Sender: FDA-Public Use
  Company Number: CH-BEH-2021136062

PATIENT
  Sex: Female

DRUGS (5)
  1. PRIVIGEN [Suspect]
     Active Substance: HUMAN IMMUNOGLOBULIN G
     Indication: RELAPSING MULTIPLE SCLEROSIS
     Dosage: UNK
     Route: 065
     Dates: start: 201808
  2. PRIVIGEN [Suspect]
     Active Substance: HUMAN IMMUNOGLOBULIN G
     Indication: BRAIN STEM SYNDROME
     Dosage: 0.4 GRAM PER KILOGRAM, QMT
     Route: 065
     Dates: start: 2021
  3. TECFIDERA [Concomitant]
     Active Substance: DIMETHYL FUMARATE
     Indication: IMMUNE ENHANCEMENT THERAPY
  4. PRIVIGEN [Suspect]
     Active Substance: HUMAN IMMUNOGLOBULIN G
     Indication: PROPHYLAXIS
  5. TECFIDERA [Concomitant]
     Active Substance: DIMETHYL FUMARATE
     Indication: IMMUNE ENHANCEMENT THERAPY

REACTIONS (5)
  - No adverse event [Unknown]
  - Exposure via breast milk [Unknown]
  - Multiple sclerosis [Unknown]
  - Off label use [Unknown]
  - Drug ineffective for unapproved indication [Unknown]
